FAERS Safety Report 16413020 (Version 1)
Quarter: 2019Q2

REPORT INFORMATION
  Report Type: Spontaneous
  Country: DE (occurrence: DE)
  Receive Date: 20190611
  Receipt Date: 20190611
  Transmission Date: 20190711
  Serious: Yes (Other)
  Sender: FDA-Public Use
  Company Number: DE-AUROBINDO-AUR-APL-2019-033485

PATIENT

DRUGS (1)
  1. VALSARTAN-ACTAVIS COMP 80 MG/12.5 MG FILM COATED TABLETS [Suspect]
     Active Substance: HYDROCHLOROTHIAZIDE\VALSARTAN
     Indication: PRODUCT USED FOR UNKNOWN INDICATION
     Dosage: 80 MG/12.5 MG
     Route: 048
     Dates: start: 2009, end: 20181231

REACTIONS (2)
  - Breast cancer [Unknown]
  - Skin cancer [Unknown]

NARRATIVE: CASE EVENT DATE: 201710
